FAERS Safety Report 9053587 (Version 1)
Quarter: 2013Q1

REPORT INFORMATION
  Report Type: Spontaneous
  Country: US (occurrence: None)
  Receive Date: 20130201
  Receipt Date: 20130201
  Transmission Date: 20140127
  Serious: No
  Sender: FDA-Public Use
  Company Number: None

PATIENT
  Age: 43 Year
  Sex: Female
  Weight: 51.26 kg

DRUGS (1)
  1. CLARITHROMYCIN 500MG TEVA USA [Suspect]
     Indication: SINUSITIS
     Route: 048
     Dates: start: 20130127, end: 20130129

REACTIONS (4)
  - Dyspepsia [None]
  - Dysgeusia [None]
  - Abdominal discomfort [None]
  - Hyperchlorhydria [None]
